FAERS Safety Report 5342046-5 (Version None)
Quarter: 2007Q2

REPORT INFORMATION
  Report Type: 
  Country: None (occurrence: None)
  Receive Date: 20070530
  Receipt Date: 20070530
  Transmission Date: 20071010
  Serious: Yes (Hospitalization)
  Sender: FDA-Public Use
  Company Number: None

PATIENT
  Age: 51 Year
  Sex: Female
  Weight: 77 kg

DRUGS (2)
  1. LOTRONEX [Suspect]
     Indication: DIARRHOEA
     Dosage: 0.5 MG EVERY OTHER DAY PO
     Route: 048
  2. LOTRONEX [Suspect]
     Indication: IRRITABLE BOWEL SYNDROME
     Dosage: 0.5 MG EVERY OTHER DAY PO
     Route: 048

REACTIONS (3)
  - COLITIS ISCHAEMIC [None]
  - DIARRHOEA HAEMORRHAGIC [None]
  - PYREXIA [None]
